FAERS Safety Report 12990934 (Version 1)
Quarter: 2016Q4

REPORT INFORMATION
  Report Type: Spontaneous
  Country: US (occurrence: US)
  Receive Date: 20161130
  Receipt Date: 20161130
  Transmission Date: 20170207
  Serious: No
  Sender: FDA-Public Use
  Company Number: None

PATIENT
  Age: 67 Year
  Sex: Female
  Weight: 157.5 kg

DRUGS (27)
  1. BUTRANS [Suspect]
     Active Substance: BUPRENORPHINE
     Indication: OSTEOARTHRITIS
     Dosage: ?          OTHER FREQUENCY:Q 7 DAYS;??10 IG MICROGRAMAS(S)?
     Route: 062
     Dates: start: 20150506, end: 20161130
  2. GLUCOVANCE [Concomitant]
     Active Substance: GLYBURIDE\METFORMIN HYDROCHLORIDE
  3. GLYBURIDE/METFORMIN [Concomitant]
     Active Substance: GLYBURIDE\METFORMIN
  4. PIOGLITAZONE. [Concomitant]
     Active Substance: PIOGLITAZONE
  5. BUTRANS [Suspect]
     Active Substance: BUPRENORPHINE
     Indication: PRODUCT USED FOR UNKNOWN INDICATION
     Dosage: ?          OTHER FREQUENCY:Q 7 DAYS;??10 IG MICROGRAMAS(S)?
     Route: 062
     Dates: start: 20150506, end: 20161130
  6. GABAPENTIN. [Concomitant]
     Active Substance: GABAPENTIN
  7. MOVANTIK [Concomitant]
     Active Substance: NALOXEGOL OXALATE
  8. GARLIC. [Concomitant]
     Active Substance: GARLIC
  9. IRON [Concomitant]
     Active Substance: IRON
  10. VALERIAN ROOT [Concomitant]
     Active Substance: VALERIAN
  11. YUCCA [Concomitant]
  12. ACTOS [Concomitant]
     Active Substance: PIOGLITAZONE HYDROCHLORIDE
  13. BUTRANS [Suspect]
     Active Substance: BUPRENORPHINE
     Indication: SPINAL CLAUDICATION
     Dosage: ?          OTHER FREQUENCY:Q 7 DAYS;??10 IG MICROGRAMAS(S)?
     Route: 062
     Dates: start: 20150506, end: 20161130
  14. TRAMADOL. [Concomitant]
     Active Substance: TRAMADOL
  15. APAP [Concomitant]
     Active Substance: ACETAMINOPHEN
  16. ASPIRIN. [Concomitant]
     Active Substance: ASPIRIN
  17. CINNAMON. [Concomitant]
     Active Substance: CINNAMON
  18. BUMETANIDE. [Concomitant]
     Active Substance: BUMETANIDE
  19. VITAMIN C [Concomitant]
     Active Substance: ASCORBIC ACID
  20. MELOXICAM. [Concomitant]
     Active Substance: MELOXICAM
  21. METOPROLOL ER [Concomitant]
     Active Substance: METOPROLOL SUCCINATE
  22. NITROGLYCERIN. [Concomitant]
     Active Substance: NITROGLYCERIN
  23. LISINOPRIL. [Concomitant]
     Active Substance: LISINOPRIL
  24. CRESTOR [Concomitant]
     Active Substance: ROSUVASTATIN CALCIUM
  25. CRANBERRY. [Concomitant]
     Active Substance: CRANBERRY
  26. BILBERRY [Concomitant]
     Active Substance: BILBERRY
  27. POTASSIUM CHLORIDE ER [Concomitant]
     Active Substance: POTASSIUM CHLORIDE

REACTIONS (2)
  - Application site pruritus [None]
  - Skin ulcer [None]

NARRATIVE: CASE EVENT DATE: 20150506
